FAERS Safety Report 19823801 (Version 1)
Quarter: 2021Q3

REPORT INFORMATION
  Report Type: Spontaneous
  Country: JP (occurrence: JP)
  Receive Date: 20210913
  Receipt Date: 20210913
  Transmission Date: 20211014
  Serious: Yes (Death)
  Sender: FDA-Public Use
  Company Number: JP-BRISTOL-MYERS SQUIBB COMPANY-BMS-2020-067838

PATIENT
  Age: 8 Decade
  Sex: Male

DRUGS (2)
  1. OPDIVO [Suspect]
     Active Substance: NIVOLUMAB
     Indication: GASTRIC CANCER
     Dosage: UNK
     Route: 041
     Dates: start: 201802, end: 202002
  2. OPDIVO [Suspect]
     Active Substance: NIVOLUMAB
     Dosage: UNK
     Route: 041
     Dates: start: 2020

REACTIONS (1)
  - Hepatic function abnormal [Fatal]

NARRATIVE: CASE EVENT DATE: 202002
